FAERS Safety Report 17227887 (Version 3)
Quarter: 2022Q4

REPORT INFORMATION
  Report Type: Spontaneous
  Country: US (occurrence: None)
  Receive Date: 20200103
  Receipt Date: 20221018
  Transmission Date: 20230113
  Serious: Yes (Other)
  Sender: FDA-Public Use
  Company Number: 2020SE00375

PATIENT
  Age: 22582 Day
  Sex: Female
  Weight: 86.2 kg

DRUGS (75)
  1. OMEPRAZOLE [Suspect]
     Active Substance: OMEPRAZOLE
     Indication: Gastrooesophageal reflux disease
     Dosage: GENERIC
     Route: 065
     Dates: start: 201203, end: 201209
  2. OMEPRAZOLE [Suspect]
     Active Substance: OMEPRAZOLE
     Indication: Gastrooesophageal reflux disease
     Dosage: GENERIC
     Route: 065
     Dates: start: 201203, end: 201209
  3. OMEPRAZOLE [Suspect]
     Active Substance: OMEPRAZOLE
     Indication: Gastrooesophageal reflux disease
     Dosage: GENERIC
     Route: 065
     Dates: start: 20120308
  4. PREVACID [Suspect]
     Active Substance: LANSOPRAZOLE
     Indication: Gastrooesophageal reflux disease
     Route: 065
     Dates: start: 200809, end: 201111
  5. PREVACID [Suspect]
     Active Substance: LANSOPRAZOLE
     Indication: Gastrooesophageal reflux disease
     Route: 065
     Dates: start: 201112, end: 201202
  6. PREVACID [Suspect]
     Active Substance: LANSOPRAZOLE
     Indication: Gastrooesophageal reflux disease
     Route: 065
     Dates: start: 20080923
  7. PANTOPRAZOLE [Suspect]
     Active Substance: PANTOPRAZOLE
     Indication: Gastrooesophageal reflux disease
     Dosage: GENERIC
     Route: 065
     Dates: start: 2016
  8. METOCLOPRAMIDE [Concomitant]
     Active Substance: METOCLOPRAMIDE
     Indication: Gastrooesophageal reflux disease
     Route: 065
     Dates: start: 2017
  9. ATORVASTATIN [Concomitant]
     Active Substance: ATORVASTATIN
     Indication: Blood cholesterol
     Route: 065
     Dates: start: 2015
  10. PAROXETINE [Concomitant]
     Active Substance: PAROXETINE
     Indication: Depression
     Route: 065
     Dates: start: 2014
  11. PRIMIDONE [Concomitant]
     Active Substance: PRIMIDONE
     Indication: Neurological symptom
     Route: 065
     Dates: start: 2014
  12. DALIRESP [Concomitant]
     Active Substance: ROFLUMILAST
     Indication: Chronic obstructive pulmonary disease
     Route: 065
     Dates: start: 2015
  13. ASPIRIN [Concomitant]
     Active Substance: ASPIRIN
     Indication: Cardiac disorder
     Route: 065
     Dates: start: 200804, end: 201311
  14. FAMOTIDINE [Concomitant]
     Active Substance: FAMOTIDINE
     Route: 065
     Dates: start: 201209, end: 201403
  15. APIS MELLIFICA/FUMARIC ACID/MYOSOTIS ARVENSIS/MAGNESIUM PHOSPHATE/OXAL [Concomitant]
     Indication: Thyroid disorder
     Route: 065
     Dates: start: 2015
  16. FLUOXETINE [Concomitant]
     Active Substance: FLUOXETINE HYDROCHLORIDE
     Indication: Depression
     Route: 065
     Dates: start: 2008, end: 2012
  17. VYTORIN [Concomitant]
     Active Substance: EZETIMIBE\SIMVASTATIN
     Indication: Blood cholesterol increased
     Route: 065
     Dates: start: 2008
  18. AMITRIPTYLINE [Concomitant]
     Active Substance: AMITRIPTYLINE
     Indication: Depression
     Route: 065
     Dates: start: 2008, end: 2009
  19. ACYCLOVIR [Concomitant]
     Active Substance: ACYCLOVIR
     Indication: Herpes virus infection
     Route: 065
     Dates: start: 2008, end: 2012
  20. TEMAZEPAM [Concomitant]
     Active Substance: TEMAZEPAM
     Indication: Insomnia
     Route: 065
     Dates: start: 2008, end: 2014
  21. CETIRIZINE [Concomitant]
     Active Substance: CETIRIZINE HYDROCHLORIDE
     Indication: Multiple allergies
     Route: 065
     Dates: start: 2008, end: 2014
  22. TRIAMTERENE [Concomitant]
     Active Substance: TRIAMTERENE
     Indication: Blood pressure measurement
     Route: 065
     Dates: start: 2008, end: 2010
  23. SIMVASTATIN [Concomitant]
     Active Substance: SIMVASTATIN
     Indication: Blood cholesterol increased
     Route: 065
     Dates: start: 2008, end: 2012
  24. GLYBURIDE [Concomitant]
     Active Substance: GLYBURIDE
  25. AZITHROMYCIN [Concomitant]
     Active Substance: AZITHROMYCIN
  26. PHENYTOIN [Concomitant]
     Active Substance: PHENYTOIN
  27. ADVAIR HFA [Concomitant]
     Active Substance: FLUTICASONE PROPIONATE\SALMETEROL XINAFOATE
  28. SINGULAIR [Concomitant]
     Active Substance: MONTELUKAST SODIUM
  29. METHOCARBAMOL [Concomitant]
     Active Substance: METHOCARBAMOL
  30. HYDROCODONE [Concomitant]
     Active Substance: HYDROCODONE
  31. ETODOLAC [Concomitant]
     Active Substance: ETODOLAC
  32. ACTOS [Concomitant]
     Active Substance: PIOGLITAZONE HYDROCHLORIDE
  33. FERROUS SULFATE [Concomitant]
     Active Substance: FERROUS SULFATE
  34. ERGOCALCIFEROL [Concomitant]
     Active Substance: ERGOCALCIFEROL
  35. TRAMADOL [Concomitant]
     Active Substance: TRAMADOL
  36. LYRICA [Concomitant]
     Active Substance: PREGABALIN
  37. SAVELLA [Concomitant]
     Active Substance: MILNACIPRAN HYDROCHLORIDE
  38. PROMETHAZINE [Concomitant]
     Active Substance: PROMETHAZINE HYDROCHLORIDE
  39. TAMIFLU [Concomitant]
     Active Substance: OSELTAMIVIR PHOSPHATE
  40. LIDODERM [Concomitant]
     Active Substance: LIDOCAINE
  41. FOSINOPRIL [Concomitant]
     Active Substance: FOSINOPRIL
  42. NYSTATIN [Concomitant]
     Active Substance: NYSTATIN
  43. BYETTA [Concomitant]
     Active Substance: EXENATIDE
  44. HUMULIN NOS [Concomitant]
     Active Substance: INSULIN HUMAN
  45. PATADAY [Concomitant]
     Active Substance: OLOPATADINE HYDROCHLORIDE
  46. CRESTOR [Concomitant]
     Active Substance: ROSUVASTATIN CALCIUM
  47. CITALOPRAM [Concomitant]
     Active Substance: CITALOPRAM HYDROBROMIDE
  48. AMLODIPINE [Concomitant]
     Active Substance: AMLODIPINE BESYLATE
  49. ONDANSETRON [Concomitant]
     Active Substance: ONDANSETRON
  50. CALCIUM ACETATE [Concomitant]
     Active Substance: CALCIUM ACETATE
  51. VENTOLIN [Concomitant]
     Active Substance: ALBUTEROL SULFATE
  52. MUPIROCIN [Concomitant]
     Active Substance: MUPIROCIN
  53. TOPIRAMATE [Concomitant]
     Active Substance: TOPIRAMATE
  54. PREDNISONE [Concomitant]
     Active Substance: PREDNISONE
  55. GLYBURIDE/ METFORMIN [Concomitant]
  56. TRIAMTERENE/ HCTZ [Concomitant]
  57. QDALL [Concomitant]
  58. PREMARIN [Concomitant]
     Active Substance: ESTROGENS, CONJUGATED
  59. METHYLPREDNISOLONE [Concomitant]
     Active Substance: METHYLPREDNISOLONE
  60. ASTELIN [Concomitant]
     Active Substance: AZELASTINE HYDROCHLORIDE
  61. FOSINOPRIL [Concomitant]
     Active Substance: FOSINOPRIL
  62. LEVOTHYROXINE [Concomitant]
     Active Substance: LEVOTHYROXINE
  63. AURYXIA [Concomitant]
     Active Substance: TETRAFERRIC TRICITRATE DECAHYDRATE
  64. CODEINE [Concomitant]
     Active Substance: CODEINE
  65. SERTRALINE [Concomitant]
     Active Substance: SERTRALINE HYDROCHLORIDE
  66. VITAMIN E [Concomitant]
     Active Substance: .ALPHA.-TOCOPHEROL
  67. RENVELA [Concomitant]
     Active Substance: SEVELAMER CARBONATE
  68. LORTAB [Concomitant]
     Active Substance: ACETAMINOPHEN\HYDROCODONE BITARTRATE
  69. TAGAMET [Concomitant]
     Active Substance: CIMETIDINE
  70. RELAFEN [Concomitant]
     Active Substance: NABUMETONE
  71. DARVOCET [Concomitant]
     Active Substance: ACETAMINOPHEN\PROPOXYPHENE HYDROCHLORIDE
  72. DIPHENHYDRAMINE [Concomitant]
     Active Substance: DIPHENHYDRAMINE
  73. TRIAMCINOLONE [Concomitant]
     Active Substance: TRIAMCINOLONE
  74. ERYTHROPOIETIN [Concomitant]
     Active Substance: ERYTHROPOIETIN
  75. METOCLOPRAMIDE [Concomitant]
     Active Substance: METOCLOPRAMIDE

REACTIONS (6)
  - Renal failure [Not Recovered/Not Resolved]
  - Chronic kidney disease [Not Recovered/Not Resolved]
  - End stage renal disease [Not Recovered/Not Resolved]
  - Nephrogenic anaemia [Unknown]
  - Hyperparathyroidism secondary [Unknown]
  - Chronic kidney disease-mineral and bone disorder [Unknown]

NARRATIVE: CASE EVENT DATE: 20090813
